FAERS Safety Report 24383532 (Version 1)
Quarter: 2024Q4

REPORT INFORMATION
  Report Type: Spontaneous
  Country: US (occurrence: US)
  Receive Date: 20241001
  Receipt Date: 20241001
  Transmission Date: 20250115
  Serious: No
  Sender: JOHNSON AND JOHNSON
  Company Number: US-VIIV HEALTHCARE LIMITED-US2024AMR117798

PATIENT
  Age: 37 Year
  Sex: Female

DRUGS (5)
  1. RILPIVIRINE [Suspect]
     Active Substance: RILPIVIRINE
     Indication: HIV infection CDC Group IV subgroup B
     Dosage: UNK UNK, Q2M
     Route: 065
     Dates: start: 20240831
  2. CABOTEGRAVIR [Suspect]
     Active Substance: CABOTEGRAVIR
     Indication: HIV infection CDC Group IV subgroup B
     Dosage: UNK UNK, Q2M
     Route: 065
     Dates: start: 20240831
  3. CABOTEGRAVIR [Concomitant]
     Active Substance: CABOTEGRAVIR
     Indication: HIV infection CDC Group IV subgroup B
     Dosage: UNK
     Route: 048
     Dates: start: 20240810
  4. SYNTHROID [Concomitant]
     Active Substance: LEVOTHYROXINE SODIUM
     Indication: Product used for unknown indication
     Dosage: UNK
  5. RILPIVIRINE [Concomitant]
     Active Substance: RILPIVIRINE
     Indication: HIV infection CDC Group IV subgroup B
     Dosage: UNK
     Route: 048
     Dates: start: 20240810

REACTIONS (4)
  - Virologic failure [Unknown]
  - Viral mutation identified [Unknown]
  - Pathogen resistance [Unknown]
  - Product use in unapproved therapeutic environment [Unknown]

NARRATIVE: CASE EVENT DATE: 20240901
